FAERS Safety Report 8960022 (Version 2)
Quarter: 2014Q2

REPORT INFORMATION
  Report Type: Spontaneous
  Country: US (occurrence: US)
  Receive Date: 20121212
  Receipt Date: 20140507
  Transmission Date: 20141212
  Serious: Yes (Hospitalization)
  Sender: FDA-Public Use
  Company Number: US-BAYER-2012-129018

PATIENT
  Age: 24 Year
  Sex: Female
  Weight: 84.81 kg

DRUGS (11)
  1. OCELLA [Suspect]
     Dosage: UNK
     Dates: start: 2005, end: 2007
  2. CIPRO [Concomitant]
     Dosage: 500 MG, BID
     Route: 048
  3. FLOVENT [Concomitant]
     Dosage: 2 PUFFS DAILY
     Route: 045
  4. HYDROCODONE [Concomitant]
  5. LORATADINE [Concomitant]
     Dosage: 10 MG, DAILY
     Route: 048
  6. CLOBETASOL [Concomitant]
     Dosage: 0.5 %, UNK
  7. NASACORT [Concomitant]
     Dosage: 750 MG, ONCE A WEEK
     Route: 045
  8. LORTAB [Concomitant]
     Dosage: 7.5/500MG [EVER] 6 HOURS
  9. ALBUTEROL [Concomitant]
  10. VENTOLIN [Concomitant]
     Dosage: 2 PUFFS 2 [TIMES] [PER] DAY
  11. PROAIR HFA [Concomitant]

REACTIONS (6)
  - Cholelithiasis [None]
  - Cholecystitis infective [None]
  - Abdominal pain upper [None]
  - Weight increased [None]
  - Discomfort [None]
  - Dyspepsia [None]
